FAERS Safety Report 5789525-4 (Version None)
Quarter: 2008Q2

REPORT INFORMATION
  Report Type: 
  Country: None (occurrence: None)
  Receive Date: 20080626
  Receipt Date: 20080208
  Transmission Date: 20081010
  Serious: No
  Sender: FDA-Public Use
  Company Number: A0708260A

PATIENT
  Age: 50 Year
  Sex: Female

DRUGS (1)
  1. ALLI [Suspect]
     Dates: end: 20080206

REACTIONS (10)
  - DEFAECATION URGENCY [None]
  - FLATULENCE [None]
  - GASTROINTESTINAL PAIN [None]
  - INSOMNIA [None]
  - MUSCLE SPASMS [None]
  - PHARMACEUTICAL PRODUCT COMPLAINT [None]
  - RECTAL DISCHARGE [None]
  - SOMNOLENCE [None]
  - STEATORRHOEA [None]
  - WEIGHT INCREASED [None]
